FAERS Safety Report 4522667-X (Version None)
Quarter: 2004Q4

REPORT INFORMATION
  Report Type: 
  Country: None (occurrence: None)
  Receive Date: 20041207
  Receipt Date: 20041117
  Transmission Date: 20050328
  Serious: Yes (Death)
  Sender: FDA-Public Use
  Company Number: JP_041105199

PATIENT
  Sex: Male
  Weight: 52 kg

DRUGS (5)
  1. GEMZAR [Suspect]
     Indication: PANCREATIC CARCINOMA STAGE IV
     Dosage: 1000 MG OTHER
     Dates: start: 20030814, end: 20030828
  2. FLUOROURACIL [Concomitant]
  3. MS CONTIN [Concomitant]
  4. MAGLAX (MAGNESIUM OXIDE) [Concomitant]
  5. PURSENNID [Concomitant]

REACTIONS (2)
  - CHOLANGITIS ACUTE [None]
  - CHOLANGITIS SUPPURATIVE [None]
